FAERS Safety Report 4552896-0 (Version None)
Quarter: 2005Q1

REPORT INFORMATION
  Report Type: 
  Country: None (occurrence: None)
  Receive Date: 20050113
  Receipt Date: 20050103
  Transmission Date: 20050727
  Serious: No
  Sender: FDA-Public Use
  Company Number: 21435

PATIENT
  Age: 74 Year
  Sex: Male
  Weight: 92.9874 kg

DRUGS (5)
  1. NIASPAN [Suspect]
     Indication: BLOOD CHOLESTEROL INCREASED
     Dosage: 500 MG QHS PO
     Route: 048
     Dates: start: 20030101, end: 20040701
  2. ACTOS [Concomitant]
  3. GLUCOPHAGE [Concomitant]
  4. ZETIA [Concomitant]
  5. DIOVAN [Concomitant]

REACTIONS (3)
  - INTRAOCULAR PRESSURE INCREASED [None]
  - OCULAR VASCULAR DISORDER [None]
  - POST PROCEDURAL COMPLICATION [None]
